FAERS Safety Report 6661228-3 (Version None)
Quarter: 2010Q1

REPORT INFORMATION
  Report Type: 
  Country: None (occurrence: None)
  Receive Date: 20100331
  Receipt Date: 20100302
  Transmission Date: 20100710
  Serious: Yes (Other)
  Sender: FDA-Public Use
  Company Number: TN-BAYER-201018167GPV

PATIENT
  Age: 13 Year
  Sex: Female

DRUGS (3)
  1. PHENOBARBITAL TAB [Suspect]
     Indication: PORPHYRIA ACUTE
     Route: 065
  2. NIFEDIPINE [Suspect]
     Indication: PORPHYRIA ACUTE
     Route: 065
  3. FAMOTIDINE [Suspect]
     Indication: PORPHYRIA ACUTE

REACTIONS (1)
  - PERIPHERAL MOTOR NEUROPATHY [None]
